FAERS Safety Report 11020699 (Version 7)
Quarter: 2015Q3

REPORT INFORMATION
  Report Type: Report from Study
  Country: KR (occurrence: KR)
  Receive Date: 20150413
  Receipt Date: 20150924
  Transmission Date: 20151125
  Serious: Yes (Hospitalization, Other)
  Sender: FDA-Public Use
  Company Number: KR-ALEXION PHARMACEUTICALS INC-A201501205

PATIENT

DRUGS (3)
  1. SOLIRIS [Suspect]
     Active Substance: ECULIZUMAB
     Indication: PAROXYSMAL NOCTURNAL HAEMOGLOBINURIA
     Dosage: 2 VIALS, QW
     Route: 042
     Dates: start: 20140729, end: 20140819
  2. ASPIRIN                            /00002701/ [Concomitant]
     Active Substance: ASPIRIN
     Indication: PRINZMETAL ANGINA
     Dosage: 100 MG, UNK
     Route: 048
     Dates: start: 20100526
  3. SOLIRIS [Suspect]
     Active Substance: ECULIZUMAB
     Dosage: 3 VIALS, QW
     Route: 042
     Dates: start: 20140828

REACTIONS (23)
  - Pyrexia [Recovering/Resolving]
  - Headache [Not Recovered/Not Resolved]
  - C-reactive protein increased [Recovering/Resolving]
  - C-reactive protein increased [Recovering/Resolving]
  - C-reactive protein increased [Recovering/Resolving]
  - Musculoskeletal pain [Recovered/Resolved]
  - Haemoglobin decreased [Recovered/Resolved]
  - Chills [Recovered/Resolved]
  - Chills [Recovered/Resolved]
  - Pyrexia [Recovered/Resolved]
  - Headache [Recovered/Resolved]
  - Pyrexia [Recovered/Resolved]
  - Headache [Recovered/Resolved]
  - Meningitis viral [Recovered/Resolved]
  - Dizziness [Recovered/Resolved]
  - Haemoglobin abnormal [Recovered/Resolved]
  - Dyspnoea [Not Recovered/Not Resolved]
  - C-reactive protein increased [Recovering/Resolving]
  - Cough [Recovered/Resolved]
  - Pain [Recovered/Resolved]
  - Pyrexia [Recovering/Resolving]
  - Asthenia [Recovered/Resolved]
  - Pyrexia [Recovered/Resolved]

NARRATIVE: CASE EVENT DATE: 20141028
